FAERS Safety Report 12470356 (Version 1)
Quarter: 2016Q2

REPORT INFORMATION
  Report Type: Spontaneous
  Country: US (occurrence: US)
  Receive Date: 20160616
  Receipt Date: 20160616
  Transmission Date: 20160815
  Serious: No
  Sender: FDA-Public Use
  Company Number: US-BIOGEN-2016BI00247962

PATIENT
  Age: 31 Year

DRUGS (1)
  1. AVONEX [Suspect]
     Active Substance: INTERFERON BETA-1A
     Indication: MULTIPLE SCLEROSIS
     Route: 030
     Dates: start: 20150316

REACTIONS (1)
  - Hemianaesthesia [Not Recovered/Not Resolved]

NARRATIVE: CASE EVENT DATE: 20160602
